FAERS Safety Report 6168098-0 (Version None)
Quarter: 2009Q2

REPORT INFORMATION
  Report Type: 
  Country: None (occurrence: None)
  Receive Date: 20090423
  Receipt Date: 20090408
  Transmission Date: 20091009
  Serious: Yes (Death, Life-Threatening, Hospitalization, Other)
  Sender: FDA-Public Use
  Company Number: A-CH2008-22160

PATIENT
  Age: 52 Year
  Sex: Male
  Weight: 63 kg

DRUGS (8)
  1. TRACLEER [Suspect]
     Indication: SKIN ULCER
     Dosage: 62.5 MG, BID, ORAL
     Route: 048
     Dates: start: 20080616, end: 20080716
  2. PREDNISONE TAB [Suspect]
  3. LASIX [Concomitant]
  4. CHRONADALATE (NIFEDIPINE) [Concomitant]
  5. PERINDOPRIL ERBUMINE [Concomitant]
  6. KARDEGIC (ACETYLSALICYLATE LYSNIE) [Concomitant]
  7. PRAVASTATIN SODIUM [Concomitant]
  8. OMEPRAZOLE [Concomitant]

REACTIONS (5)
  - ACUTE PULMONARY OEDEMA [None]
  - CARDIAC FAILURE [None]
  - DYSPNOEA [None]
  - RESPIRATORY DISTRESS [None]
  - TUBERCULOSIS [None]
